FAERS Safety Report 16145921 (Version 1)
Quarter: 2019Q2

REPORT INFORMATION
  Report Type: Spontaneous
  Country: FR (occurrence: FR)
  Receive Date: 20190402
  Receipt Date: 20190402
  Transmission Date: 20190711
  Serious: Yes (Life-Threatening)
  Sender: FDA-Public Use
  Company Number: FR-RECORDATI RARE DISEASES INC.-FR-R13005-19-00081

PATIENT
  Age: 17 Year
  Sex: Male
  Weight: 47 kg

DRUGS (3)
  1. ENDOXAN [Suspect]
     Active Substance: CYCLOPHOSPHAMIDE
     Indication: EWING^S SARCOMA
     Route: 041
     Dates: start: 20180806
  2. VINCRISTINE [Suspect]
     Active Substance: VINCRISTINE
     Indication: EWING^S SARCOMA
     Route: 041
     Dates: start: 20180806
  3. COSMEGEN [Suspect]
     Active Substance: DACTINOMYCIN
     Indication: EWING^S SARCOMA
     Route: 041
     Dates: start: 20180806

REACTIONS (2)
  - Septic shock [Recovered/Resolved]
  - Clostridium difficile colitis [Recovered/Resolved]

NARRATIVE: CASE EVENT DATE: 20181012
